FAERS Safety Report 4570474-4 (Version None)
Quarter: 2005Q1

REPORT INFORMATION
  Report Type: 
  Country: None (occurrence: None)
  Receive Date: 20050204
  Receipt Date: 20031009
  Transmission Date: 20050727
  Serious: Yes (Life-Threatening, Hospitalization, Disabling, Other)
  Sender: FDA-Public Use
  Company Number: US-MERCK-0310USA01303

PATIENT
  Age: 55 Year
  Sex: Female
  Weight: 91 kg

DRUGS (21)
  1. VIOXX [Suspect]
     Indication: ARTHRITIS
     Route: 048
     Dates: start: 20010101, end: 20011227
  2. VIOXX [Suspect]
     Indication: PAIN
     Route: 048
     Dates: start: 20010101, end: 20011227
  3. CARDIZEM CD [Concomitant]
     Route: 065
  4. K-DUR 10 [Concomitant]
     Route: 065
  5. ACCUPRIL [Concomitant]
     Route: 065
     Dates: start: 20010627, end: 20010714
  6. ACCUPRIL [Concomitant]
     Route: 065
     Dates: start: 20010715, end: 20010821
  7. ACCUPRIL [Concomitant]
     Route: 065
     Dates: start: 20010822, end: 20020120
  8. PAXIL [Concomitant]
     Route: 065
     Dates: start: 19950101, end: 20010601
  9. PAXIL [Concomitant]
     Route: 065
     Dates: start: 20010719, end: 20010829
  10. PAXIL [Concomitant]
     Route: 065
     Dates: start: 20020120
  11. PAXIL [Concomitant]
     Route: 065
     Dates: start: 20010829, end: 20020120
  12. LASIX [Concomitant]
     Route: 065
     Dates: start: 19950101
  13. LASIX [Concomitant]
     Route: 065
     Dates: start: 20010829
  14. LASIX [Concomitant]
     Route: 065
     Dates: start: 20020120
  15. SOMA [Concomitant]
     Route: 065
  16. ALEVE [Concomitant]
     Route: 065
  17. NITROGLYCERIN [Concomitant]
     Route: 065
  18. ASPIRIN [Concomitant]
     Route: 065
     Dates: start: 19950101
  19. PERCOCET [Concomitant]
     Route: 065
  20. FERROUS SULFATE [Concomitant]
     Route: 065
  21. EXTRA STRENGTH TYLENOL [Concomitant]
     Route: 065

REACTIONS (31)
  - ANAEMIA [None]
  - ANGINA PECTORIS [None]
  - ARTHRITIS [None]
  - BLOOD PRESSURE ABNORMAL [None]
  - CARDIAC MURMUR [None]
  - CARDIAC VALVE DISEASE [None]
  - CHEST PAIN [None]
  - CHEST WALL PAIN [None]
  - CHRONIC OBSTRUCTIVE PULMONARY DISEASE [None]
  - CORONARY ARTERY OCCLUSION [None]
  - DEPRESSION [None]
  - DYSPHAGIA [None]
  - EMOTIONAL DISTRESS [None]
  - FATIGUE [None]
  - GASTROOESOPHAGEAL REFLUX DISEASE [None]
  - HAEMATOMA [None]
  - HEART RATE DECREASED [None]
  - HERPES ZOSTER [None]
  - HYPERTENSION [None]
  - HYPOTENSION [None]
  - INSOMNIA [None]
  - IRRITABLE BOWEL SYNDROME [None]
  - MYOCARDIAL INFARCTION [None]
  - OEDEMA PERIPHERAL [None]
  - OESOPHAGEAL SPASM [None]
  - PAIN [None]
  - RASH PRURITIC [None]
  - RESTLESS LEGS SYNDROME [None]
  - SOMNOLENCE [None]
  - SYNCOPE [None]
  - TREMOR [None]
